FAERS Safety Report 8025105-8 (Version None)
Quarter: 2012Q1

REPORT INFORMATION
  Report Type: 
  Country: None (occurrence: None)
  Receive Date: 20120105
  Receipt Date: 20111226
  Transmission Date: 20120608
  Serious: Yes (Life-Threatening, Other)
  Sender: FDA-Public Use
  Company Number: CN-ROCHE-1027391

PATIENT

DRUGS (2)
  1. XELODA [Suspect]
     Indication: GASTRIC CANCER
     Dosage: ON DAY 1-14 OF 21 DAY CYCLE.
     Route: 048
  2. OXALIPLATIN [Suspect]
     Indication: GASTRIC CANCER
     Dosage: ON DAY 1 OF 21 DAYS CYCLE.
     Route: 041

REACTIONS (6)
  - NEUROTOXICITY [None]
  - LEUKOPENIA [None]
  - DIARRHOEA [None]
  - NAUSEA [None]
  - VOMITING [None]
  - PALMAR-PLANTAR ERYTHRODYSAESTHESIA SYNDROME [None]
